FAERS Safety Report 7555523-3 (Version None)
Quarter: 2011Q2

REPORT INFORMATION
  Report Type: 
  Country: None (occurrence: None)
  Receive Date: 20110617
  Receipt Date: 20031219
  Transmission Date: 20111010
  Serious: Yes (Hospitalization)
  Sender: FDA-Public Use
  Company Number: PHEH2003US09675

PATIENT
  Sex: Female

DRUGS (4)
  1. PRAVACHOL [Concomitant]
     Dosage: UNK
  2. EXELON [Suspect]
     Indication: DEMENTIA ALZHEIMER'S TYPE
     Dosage: 3 MG, BID
     Route: 048
     Dates: start: 20030609, end: 20031115
  3. TEMODAR [Concomitant]
     Dosage: UNK
  4. FOSAMAX [Concomitant]
     Dosage: UNK

REACTIONS (7)
  - ASTHENIA [None]
  - DYSPHAGIA [None]
  - PNEUMONIA ASPIRATION [None]
  - COUGH [None]
  - PNEUMONIA [None]
  - HYPOTENSION [None]
  - PYREXIA [None]
